FAERS Safety Report 7000773-8 (Version None)
Quarter: 2010Q3

REPORT INFORMATION
  Report Type: 
  Country: None (occurrence: None)
  Receive Date: 20100920
  Receipt Date: 20100517
  Transmission Date: 20110219
  Serious: Yes (Disabling)
  Sender: FDA-Public Use
  Company Number: US-ASTRAZENECA-2007UW09026

PATIENT
  Sex: Male

DRUGS (11)
  1. SEROQUEL [Suspect]
     Route: 048
     Dates: start: 20050324
  2. ASPIRIN [Concomitant]
     Dosage: QD
     Dates: start: 20041001
  3. TOPROL-XL [Concomitant]
     Dates: start: 20041001
  4. BENICAR [Concomitant]
     Dates: start: 20041001
  5. VYTORIN [Concomitant]
     Dosage: 10/20 QD, 10-40 MG
     Dates: start: 20041001
  6. CYMBALTA [Concomitant]
     Indication: DEPRESSION
     Dates: start: 20041001
  7. NORVASC [Concomitant]
     Dates: start: 20050321
  8. LEXAPRO [Concomitant]
     Dates: start: 20050324
  9. LAMICTAL [Concomitant]
     Dates: start: 20050324
  10. GLIPIZIDE [Concomitant]
     Dates: start: 20050401
  11. ISOSORBIDE MN [Concomitant]
     Dates: start: 20050401

REACTIONS (1)
  - DIABETES MELLITUS [None]
